FAERS Safety Report 5500737-7 (Version None)
Quarter: 2007Q4

REPORT INFORMATION
  Report Type: 
  Country: None (occurrence: None)
  Receive Date: 20071018
  Receipt Date: 20070218
  Transmission Date: 20080405
  Serious: Yes (Other)
  Sender: FDA-Public Use
  Company Number: 2007013076

PATIENT
  Age: 70 Year
  Sex: Male
  Weight: 79.4 kg

DRUGS (3)
  1. NEURONTIN [Suspect]
     Indication: CONVULSION
     Dosage: 2400 MG (600 MG, 4 IN 1 D)
     Dates: start: 19990101
  2. KEPPRA [Concomitant]
  3. TOPAMAX [Concomitant]

REACTIONS (2)
  - CONVULSION [None]
  - DYSPEPSIA [None]
